FAERS Safety Report 8955389 (Version 1)
Quarter: 2012Q4

REPORT INFORMATION
  Report Type: 
  Country: PT (occurrence: PT)
  Receive Date: 20121207
  Receipt Date: 20121207
  Transmission Date: 20130627
  Serious: Yes (Other)
  Sender: FDA-Public Use
  Company Number: PT-009507513-1212PRT002090

PATIENT
  Age: 71 Year
  Sex: Female

DRUGS (3)
  1. FOSAMAX [Suspect]
     Dosage: UNK
     Route: 048
  2. AZATHIOPRINE [Concomitant]
     Dosage: 100 mg, qd
  3. PREDNISOLONE [Concomitant]
     Dosage: 10 mg, qd

REACTIONS (1)
  - Femur fracture [Unknown]
